FAERS Safety Report 5753005-2 (Version None)
Quarter: 2008Q2

REPORT INFORMATION
  Report Type: 
  Country: None (occurrence: None)
  Receive Date: 20080527
  Receipt Date: 20080514
  Transmission Date: 20081010
  Serious: Yes (Hospitalization)
  Sender: FDA-Public Use
  Company Number: OMPQ-UK-0805S-0320

PATIENT
  Age: 21 Year
  Sex: Male

DRUGS (2)
  1. OMNIPAQUE 240 [Suspect]
     Indication: DRUG USE FOR UNKNOWN INDICATION
     Dosage: 80 ML, SINGLE DOSE, I.V.
     Route: 042
     Dates: start: 20080428, end: 20080428
  2. BACTRIN (SEPTRIN) [Concomitant]

REACTIONS (4)
  - ARTHROPATHY [None]
  - ASTHENIA [None]
  - FATIGUE [None]
  - PRURITUS [None]
